FAERS Safety Report 20485976 (Version 2)
Quarter: 2022Q1

REPORT INFORMATION
  Report Type: Spontaneous
  Country: US (occurrence: US)
  Receive Date: 20220217
  Receipt Date: 20220302
  Transmission Date: 20220423
  Serious: Yes (Other)
  Sender: FDA-Public Use
  Company Number: US-TEVA-2022-US-2007096

PATIENT

DRUGS (10)
  1. DEXMEDETOMIDINE [Suspect]
     Active Substance: DEXMEDETOMIDINE
     Indication: Maintenance of anaesthesia
     Dosage: SLOW LOADING DOSE FOR OVER 10 MINUTES
     Route: 065
  2. DEXMEDETOMIDINE [Suspect]
     Active Substance: DEXMEDETOMIDINE
     Dosage: A CONTINUOUS INFUSION TITRATED FROM 1 MICROG/KG/HR TO 8 MICROG/KG/HR
     Route: 065
  3. EPINEPHRINE [Suspect]
     Active Substance: EPINEPHRINE
     Indication: Induction of anaesthesia
     Route: 065
  4. ROCURONIUM [Suspect]
     Active Substance: ROCURONIUM BROMIDE
     Indication: Induction of anaesthesia
     Dosage: THE DOSE WAS REPEATED IN SMALLER DOSES AS NEEDED THROUGHOUT THE PROCEDURE
     Route: 042
  5. SEVOFLURANE [Suspect]
     Active Substance: SEVOFLURANE
     Indication: Induction of anaesthesia
     Dosage: MINIMUM ALVEOLAR CONCENTRATION (MAC) OF 3.5
     Route: 055
  6. NITROUS OXIDE [Suspect]
     Active Substance: NITROUS OXIDE
     Indication: Induction of anaesthesia
     Dosage: MINIMUM ALVEOLAR CONCENTRATION (MAC) OF 0.75
     Route: 055
  7. ATROPINE [Suspect]
     Active Substance: ATROPINE
     Indication: Induction of anaesthesia
     Route: 042
  8. ACETAMINOPHEN [Suspect]
     Active Substance: ACETAMINOPHEN
     Indication: Induction of anaesthesia
     Dosage: ONLY ONE DOSE
     Route: 054
  9. BUPIVACAINE [Suspect]
     Active Substance: BUPIVACAINE
     Indication: Induction of anaesthesia
     Route: 065
  10. FENTANYL [Suspect]
     Active Substance: FENTANYL
     Indication: Maintenance of anaesthesia
     Dosage: BOLUS THROUGHOUT THE PROCEDURE BASED ON VITAL SIGNS AND PATIENT CONDITION
     Route: 065

REACTIONS (1)
  - Bradycardia [Recovered/Resolved]
